FAERS Safety Report 16821518 (Version 1)
Quarter: 2019Q3

REPORT INFORMATION
  Report Type: Spontaneous
  Country: CN (occurrence: CN)
  Receive Date: 20190918
  Receipt Date: 20190918
  Transmission Date: 20191005
  Serious: Yes (Other)
  Sender: FDA-Public Use
  Company Number: CN-PFIZER INC-2019395632

PATIENT
  Age: 30 Year
  Sex: Male
  Weight: 100 kg

DRUGS (2)
  1. SODIUM CHLORIDE. [Concomitant]
     Active Substance: SODIUM CHLORIDE
     Indication: VEHICLE SOLUTION USE
     Dosage: 250 ML, 1X/DAY
     Route: 041
     Dates: start: 20190804, end: 20190809
  2. METHYLPREDNISOLONE SODIUM SUCCINATE. [Suspect]
     Active Substance: METHYLPREDNISOLONE SODIUM SUCCINATE
     Indication: EYE INFLAMMATION
     Dosage: 500 MG, 1X/DAY
     Route: 041
     Dates: start: 20190804, end: 20190809

REACTIONS (2)
  - Chorioretinopathy [Recovering/Resolving]
  - Detachment of retinal pigment epithelium [Recovering/Resolving]

NARRATIVE: CASE EVENT DATE: 201908
